FAERS Safety Report 9886533 (Version 2)
Quarter: 2014Q3

REPORT INFORMATION
  Report Type: Spontaneous
  Country: US (occurrence: US)
  Receive Date: 20140210
  Receipt Date: 20140711
  Transmission Date: 20150326
  Serious: Yes (Death)
  Sender: FDA-Public Use
  Company Number: US-BAYER-2014-016935

PATIENT
  Age: 22 Year
  Sex: Male
  Weight: 72.56 kg

DRUGS (1)
  1. ALKA-SELTZER PLUS COLD FORMULA [Suspect]
     Active Substance: ASPIRIN\CHLORPHENIRAMINE MALEATE\PHENYLEPHRINE BITARTRATE
     Indication: INFLUENZA
     Dosage: THE CONSUMER TOOK 2 TO 4 TABLETS THROUGHOUT THE DAY

REACTIONS (1)
  - Reye^s syndrome [Fatal]
